FAERS Safety Report 16158548 (Version 8)
Quarter: 2019Q4

REPORT INFORMATION
  Report Type: Spontaneous
  Country: US (occurrence: US)
  Receive Date: 20190404
  Receipt Date: 20191125
  Transmission Date: 20200122
  Serious: Yes (Other)
  Sender: FDA-Public Use
  Company Number: PHEH2019US014813

PATIENT
  Sex: Female
  Weight: 56.69 kg

DRUGS (2)
  1. ZOFRAN [Suspect]
     Active Substance: ONDANSETRON HYDROCHLORIDE
     Indication: HYPEREMESIS GRAVIDARUM
     Dosage: 08 MG, Q8H, PRN
     Route: 065
     Dates: start: 20020223, end: 20020501
  2. ZOFRAN ODT [Suspect]
     Active Substance: ONDANSETRON HYDROCHLORIDE
     Indication: MORNING SICKNESS
     Dosage: 01 DF, Q8H, PRN
     Route: 048

REACTIONS (8)
  - Product use in unapproved indication [Unknown]
  - Oligohydramnios [Unknown]
  - Anhedonia [Unknown]
  - Maternal exposure during pregnancy [Unknown]
  - Emotional distress [Unknown]
  - Anxiety [Unknown]
  - Gestational diabetes [Unknown]
  - Pain [Unknown]
